FAERS Safety Report 9257253 (Version 2)
Quarter: 2013Q2

REPORT INFORMATION
  Report Type: Spontaneous
  Country: US (occurrence: US)
  Receive Date: 20130426
  Receipt Date: 20130521
  Transmission Date: 20140414
  Serious: Yes (Other)
  Sender: FDA-Public Use
  Company Number: PHEH2013US009205

PATIENT
  Age: 41 Year
  Sex: Female
  Weight: 78.5 kg

DRUGS (1)
  1. GILENYA [Suspect]
     Indication: RELAPSING-REMITTING MULTIPLE SCLEROSIS
     Dosage: 0.5 MG, QD
     Route: 048

REACTIONS (12)
  - Grand mal convulsion [Recovered/Resolved]
  - Unresponsive to stimuli [Unknown]
  - Urinary incontinence [Unknown]
  - Confusional state [Unknown]
  - Asthenia [Unknown]
  - Somnolence [Unknown]
  - Lethargy [Unknown]
  - Tongue biting [Unknown]
  - Loss of consciousness [Unknown]
  - Muscle rigidity [Unknown]
  - Musculoskeletal stiffness [Unknown]
  - Tonic clonic movements [Unknown]
